FAERS Safety Report 4390982-9 (Version None)
Quarter: 2004Q3

REPORT INFORMATION
  Report Type: 
  Country: None (occurrence: None)
  Receive Date: 20040701
  Receipt Date: 20040701
  Transmission Date: 20050211
  Serious: Yes (Hospitalization, Disabling)
  Sender: FDA-Public Use
  Company Number: None

PATIENT
  Age: 67 Year
  Sex: Male

DRUGS (1)
  1. ZOLADEX [Suspect]
     Indication: PROSTATE CANCER
     Dosage: 3.6 MG SC
     Route: 058

REACTIONS (6)
  - BLINDNESS [None]
  - HAEMORRHAGIC TUMOUR NECROSIS [None]
  - HEADACHE [None]
  - NAUSEA [None]
  - PITUITARY TUMOUR BENIGN [None]
  - VOMITING [None]
